FAERS Safety Report 9155757 (Version 6)
Quarter: 2014Q2

REPORT INFORMATION
  Report Type: Spontaneous
  Country: US (occurrence: US)
  Receive Date: 20130311
  Receipt Date: 20140623
  Transmission Date: 20141212
  Serious: Yes (Hospitalization, Disabling, Other)
  Sender: FDA-Public Use
  Company Number: US-MERCK-1303USA003991

PATIENT
  Sex: Female
  Weight: 78 kg

DRUGS (4)
  1. FOSAMAX [Suspect]
     Indication: OSTEOPENIA
     Dosage: 10 MG, QD
     Route: 048
     Dates: start: 199602, end: 200605
  2. FOSAMAX [Suspect]
     Indication: OSTEOPOROSIS
     Dosage: 70 MG, QW
     Route: 048
     Dates: end: 200605
  3. BONIVA [Suspect]
     Indication: OSTEOPOROSIS
     Dosage: 150 MG, QM
     Route: 048
     Dates: start: 200606
  4. PRILOSEC [Concomitant]
     Dosage: UNK
     Dates: start: 1996, end: 2003

REACTIONS (28)
  - Intramedullary rod insertion [Unknown]
  - Knee arthroplasty [Not Recovered/Not Resolved]
  - Back disorder [Not Recovered/Not Resolved]
  - Pneumonia [Unknown]
  - Gastroenteritis [Unknown]
  - Cholecystectomy [Unknown]
  - Renal failure [Unknown]
  - Femur fracture [Unknown]
  - Anxiety [Unknown]
  - Non-alcoholic steatohepatitis [Unknown]
  - Hypercholesterolaemia [Unknown]
  - Osteoarthritis [Unknown]
  - Hepatic cirrhosis [Unknown]
  - Gastrointestinal disorder [Unknown]
  - Urinary tract infection [Unknown]
  - Urinary incontinence [Unknown]
  - Arthropathy [Unknown]
  - Appendicectomy [Unknown]
  - Cataract operation [Unknown]
  - Hernia repair [Unknown]
  - Sinus operation [Unknown]
  - Lymphoedema [Unknown]
  - Hypertension [Unknown]
  - Pyrexia [Unknown]
  - Drug ineffective [Unknown]
  - Constipation [Unknown]
  - Abdominal pain [Unknown]
  - Gastrooesophageal reflux disease [Unknown]
